FAERS Safety Report 13771226 (Version 1)
Quarter: 2017Q3

REPORT INFORMATION
  Report Type: Spontaneous
  Country: US (occurrence: US)
  Receive Date: 20170720
  Receipt Date: 20170720
  Transmission Date: 20171127
  Serious: Yes (Life-Threatening, Disabling, Other)
  Sender: FDA-Public Use
  Company Number: None

PATIENT
  Age: 52 Year
  Sex: Male
  Weight: 65.25 kg

DRUGS (12)
  1. TIVICAY [Concomitant]
     Active Substance: DOLUTEGRAVIR SODIUM
  2. PREXCOZIB [Concomitant]
  3. LATANOPROST. [Concomitant]
     Active Substance: LATANOPROST
  4. FENTANYL TRANSDERMAL SYSTEM [Suspect]
     Active Substance: FENTANYL
     Indication: SPINAL FRACTURE
     Dosage: ?          OTHER STRENGTH:UGM/UGM;QUANTITY:10 PATCH(ES);OTHER FREQUENCY:72 HRS;?
     Route: 062
     Dates: start: 20170628, end: 20170719
  5. INSULIN [Concomitant]
     Active Substance: INSULIN NOS
  6. FENTANYL TRANSDERMAL SYSTEM [Suspect]
     Active Substance: FENTANYL
     Indication: POST POLIO SYNDROME
     Dosage: ?          OTHER STRENGTH:UGM/UGM;QUANTITY:10 PATCH(ES);OTHER FREQUENCY:72 HRS;?
     Route: 062
     Dates: start: 20170628, end: 20170719
  7. ENALAPRIL [Concomitant]
     Active Substance: ENALAPRIL
  8. INTTELLENCE [Concomitant]
  9. ATORVASTATIN [Concomitant]
     Active Substance: ATORVASTATIN
  10. FENTANYL TRANSDERMAL SYSTEM [Suspect]
     Active Substance: FENTANYL
     Indication: TIBIA FRACTURE
     Dosage: ?          OTHER STRENGTH:UGM/UGM;QUANTITY:10 PATCH(ES);OTHER FREQUENCY:72 HRS;?
     Route: 062
     Dates: start: 20170628, end: 20170719
  11. OXYCODONE [Concomitant]
     Active Substance: OXYCODONE
  12. MULTI-VITAMINS [Concomitant]

REACTIONS (18)
  - Disorientation [None]
  - Product size issue [None]
  - Abdominal discomfort [None]
  - Constipation [None]
  - Overdose [None]
  - Feeling of body temperature change [None]
  - Pyrexia [None]
  - Product adhesion issue [None]
  - Decreased appetite [None]
  - Vision blurred [None]
  - Somnolence [None]
  - Wrong technique in device usage process [None]
  - Hyperhidrosis [None]
  - Disturbance in attention [None]
  - Dyspnoea [None]
  - Insomnia [None]
  - Device physical property issue [None]
  - Gait disturbance [None]

NARRATIVE: CASE EVENT DATE: 20170628
